FAERS Safety Report 6546584-9 (Version None)
Quarter: 2010Q1

REPORT INFORMATION
  Report Type: 
  Country: None (occurrence: None)
  Receive Date: 20100119
  Receipt Date: 20100114
  Transmission Date: 20100710
  Serious: Yes (Hospitalization)
  Sender: FDA-Public Use
  Company Number: 2009003688

PATIENT
  Weight: 72.35 kg

DRUGS (2)
  1. ERLOTINIB HYDROCHLORIDE [Suspect]
     Indication: GASTRIC CANCER
     Dosage: (100 MG,QD DAYS 1-21 OF CYCLE),ORAL
     Route: 048
     Dates: start: 20090902, end: 20091116
  2. CETUXIMAB (CETUXIMAB) (INJECTION FOR INFUSION) [Suspect]
     Indication: GASTRIC CANCER
     Dosage: (250 MG/M2,QW),INTRAVENOUS
     Route: 042
     Dates: start: 20090902, end: 20091116

REACTIONS (8)
  - DIARRHOEA [None]
  - GASTROINTESTINAL OBSTRUCTION [None]
  - HAEMATEMESIS [None]
  - HYPOGLYCAEMIA [None]
  - HYPOKALAEMIA [None]
  - HYPOMAGNESAEMIA [None]
  - NAUSEA [None]
  - VOMITING [None]
